FAERS Safety Report 12851210 (Version 3)
Quarter: 2016Q4

REPORT INFORMATION
  Report Type: Report from Study
  Country: None (occurrence: US)
  Receive Date: 20161015
  Receipt Date: 20161209
  Transmission Date: 20170207
  Serious: Yes (Hospitalization, Other)
  Sender: FDA-Public Use
  Company Number: US-ABBVIE-16K-163-1748297-00

PATIENT
  Age: 68 Year
  Sex: Female
  Weight: 90.8 kg

DRUGS (1)
  1. HUMIRA [Suspect]
     Active Substance: ADALIMUMAB
     Indication: RHEUMATOID ARTHRITIS
     Route: 058
     Dates: start: 20160118, end: 201607

REACTIONS (13)
  - Postoperative renal failure [Recovered/Resolved]
  - Lethargy [Recovering/Resolving]
  - Arthralgia [Not Recovered/Not Resolved]
  - Rotator cuff syndrome [Recovered/Resolved]
  - Rhabdomyolysis [Recovered/Resolved]
  - Abasia [Recovered/Resolved]
  - Musculoskeletal pain [Recovered/Resolved]
  - Post procedural complication [Recovered/Resolved]
  - Muscular weakness [Recovered/Resolved]
  - Dehydration [Recovered/Resolved]
  - Mobility decreased [Unknown]
  - Blood glucose decreased [Recovered/Resolved]
  - Asthenia [Recovered/Resolved]

NARRATIVE: CASE EVENT DATE: 2016
